FAERS Safety Report 10414765 (Version 2)
Quarter: 2014Q4

REPORT INFORMATION
  Report Type: Spontaneous
  Country: TR (occurrence: TR)
  Receive Date: 20140828
  Receipt Date: 20141028
  Transmission Date: 20150528
  Serious: Yes (Other)
  Sender: FDA-Public Use
  Company Number: TR-AMGEN-TURSP2014065062

PATIENT
  Age: 61 Year
  Sex: Female
  Weight: 70 kg

DRUGS (1)
  1. VECTIBIX [Suspect]
     Active Substance: PANITUMUMAB
     Indication: PRODUCT USED FOR UNKNOWN INDICATION
     Dosage: 420 MG, ONCE IN TWO WEEK
     Route: 042

REACTIONS (1)
  - Skin toxicity [Unknown]

NARRATIVE: CASE EVENT DATE: 201408
